FAERS Safety Report 25466961 (Version 1)
Quarter: 2025Q2

REPORT INFORMATION
  Report Type: Spontaneous
  Country: JP (occurrence: JP)
  Receive Date: 20250623
  Receipt Date: 20250623
  Transmission Date: 20250716
  Serious: Yes (Death, Hospitalization, Other)
  Sender: EXELA PHARMA SCIENCES
  Company Number: JP-EXELAPHARMA-2025EXLA00107

PATIENT
  Age: 64 Year
  Sex: Male

DRUGS (8)
  1. NIPRIDE RTU [Suspect]
     Active Substance: SODIUM NITROPRUSSIDE
     Indication: Arteriospasm coronary
     Route: 022
  2. UNSPECIFIED INGREDIENT [Concomitant]
     Active Substance: UNSPECIFIED INGREDIENT
  3. UNSPECIFIED INGREDIENT [Concomitant]
     Active Substance: UNSPECIFIED INGREDIENT
  4. alpha-blocker [Concomitant]
  5. ISOSORBIDE DINITRATE [Concomitant]
     Active Substance: ISOSORBIDE DINITRATE
     Route: 022
  6. ISOSORBIDE DINITRATE [Concomitant]
     Active Substance: ISOSORBIDE DINITRATE
     Route: 042
  7. NICORANDIL [Concomitant]
     Active Substance: NICORANDIL
     Route: 022
  8. NICORANDIL [Concomitant]
     Active Substance: NICORANDIL
     Route: 042

REACTIONS (2)
  - Drug ineffective [Fatal]
  - Cardiac output decreased [Fatal]
